FAERS Safety Report 17098178 (Version 1)
Quarter: 2019Q4

REPORT INFORMATION
  Report Type: Spontaneous
  Country: US (occurrence: US)
  Receive Date: 20191105
  Receipt Date: 20191105
  Transmission Date: 20200122
  Serious: No
  Sender: FDA-Public Use
  Company Number: None

PATIENT
  Age: 62 Year
  Sex: Female
  Weight: 62.14 kg

DRUGS (3)
  1. EVENITY [Suspect]
     Active Substance: ROMOSOZUMAB-AQQG
     Indication: STRESS FRACTURE
     Route: 058
     Dates: start: 201909
  2. EVENITY [Suspect]
     Active Substance: ROMOSOZUMAB-AQQG
     Indication: RHEUMATOID ARTHRITIS
     Route: 058
     Dates: start: 201909
  3. EVENITY [Suspect]
     Active Substance: ROMOSOZUMAB-AQQG
     Indication: SENILE OSTEOPOROSIS
     Route: 058
     Dates: start: 201909

REACTIONS (4)
  - Chronic obstructive pulmonary disease [None]
  - Hip fracture [None]
  - Therapy cessation [None]
  - Fractured sacrum [None]
